FAERS Safety Report 8764564 (Version 2)
Quarter: 2012Q4

REPORT INFORMATION
  Report Type: 
  Country: US (occurrence: US)
  Receive Date: 20120831
  Receipt Date: 20120911
  Transmission Date: 20130627
  Serious: No
  Sender: FDA-Public Use
  Company Number: US-ASTRAZENECA-2011SE75758

PATIENT
  Age: 57 Year
  Sex: Female

DRUGS (17)
  1. SYMBICORT PMDI [Suspect]
     Dosage: UNKNOWN
     Route: 055
  2. NEXIUM [Concomitant]
     Route: 048
  3. ACCUPRIL [Concomitant]
     Route: 048
  4. TYLENOL 3 [Concomitant]
     Dosage: 300-30MG, ONE TABLET FOUR TIMES A DAY
     Route: 048
  5. ALBUTEROL [Concomitant]
     Dosage: TWO PUFFS FOUR TIMES DAILY
     Route: 055
  6. VITAMIN D3 [Concomitant]
     Route: 048
  7. VITAMIN B12 [Concomitant]
     Route: 060
  8. FLEXERIL [Concomitant]
     Route: 048
  9. VALIUM [Concomitant]
     Route: 048
  10. BENADRYL ALLERGY [Concomitant]
     Route: 048
  11. VASOTEC [Concomitant]
     Route: 048
  12. IBUPROFEN [Concomitant]
     Route: 048
  13. KOMBIGLYZE XR [Concomitant]
     Dosage: 1-1000 MG PER TABLET DAILY WITH DINNER
     Route: 048
  14. SYNTHROID [Concomitant]
     Route: 048
  15. LOVAZA [Concomitant]
     Route: 048
  16. NIASPAN [Concomitant]
     Indication: HYPERTRIGLYCERIDAEMIA
     Route: 048
  17. SPIRIVA [Concomitant]
     Route: 055

REACTIONS (3)
  - Tongue coated [Unknown]
  - Atrophic glossitis [Unknown]
  - Drug hypersensitivity [Unknown]
